FAERS Safety Report 10449082 (Version 1)
Quarter: 2014Q3

REPORT INFORMATION
  Report Type: Other
  Country: US (occurrence: US)
  Receive Date: 20140912
  Receipt Date: 20140912
  Transmission Date: 20150326
  Serious: No
  Sender: FDA-Public Use
  Company Number: US-LUPIN PHARMACEUTICALS INC.-E2B_00002374

PATIENT
  Age: 62 Year
  Sex: Female
  Weight: 90.8 kg

DRUGS (2)
  1. DULOXETINE DELAYED-RELEASE 20 MG CAPSULES USP [Suspect]
     Active Substance: DULOXETINE
     Indication: FIBROMYALGIA
     Dates: start: 201401, end: 201406
  2. DULOXETINE DELAYED-RELEASE 30 MG CAPSULES USP [Suspect]
     Active Substance: DULOXETINE
     Indication: FIBROMYALGIA
     Dates: start: 201406, end: 20140701

REACTIONS (6)
  - Depression [Unknown]
  - Somnolence [Not Recovered/Not Resolved]
  - Anxiety [Unknown]
  - Fibromyalgia [Not Recovered/Not Resolved]
  - Apathy [Not Recovered/Not Resolved]
  - Off label use [Unknown]

NARRATIVE: CASE EVENT DATE: 201401
